FAERS Safety Report 8835280 (Version 1)
Quarter: 2012Q4

REPORT INFORMATION
  Report Type: Report from Study
  Country: NO (occurrence: NO)
  Receive Date: 20121011
  Receipt Date: 20121011
  Transmission Date: 20130627
  Serious: Yes (Hospitalization, Congenital Anomaly)
  Sender: FDA-Public Use
  Company Number: NO-ASTRAZENECA-2012SE76861

PATIENT
  Age: 32737 Day
  Sex: Female

DRUGS (11)
  1. AZD6140 [Suspect]
     Indication: CORONARY ARTERY DISEASE
     Route: 048
     Dates: start: 20110721, end: 20120914
  2. AZD6140 [Suspect]
     Indication: CORONARY ARTERY DISEASE
     Route: 048
     Dates: start: 20120924
  3. FURIX [Concomitant]
     Indication: CARDIAC FAILURE
     Route: 048
  4. LISINOPRIL [Concomitant]
     Indication: MYOCARDIAL INFARCTION
     Route: 048
  5. AFIPRAN [Concomitant]
     Indication: VOMITING
     Route: 042
     Dates: start: 20120915, end: 20120915
  6. SELOZOK [Concomitant]
     Indication: MYOCARDIAL INFARCTION
     Route: 048
  7. TIMOLOL [Concomitant]
     Indication: GLAUCOMA
     Route: 047
  8. SIMVASTATIN [Concomitant]
     Indication: MYOCARDIAL INFARCTION
     Route: 048
  9. INSULIN INSULATARD [Concomitant]
     Indication: TYPE 2 DIABETES MELLITUS
     Route: 058
  10. TRAVATAN [Concomitant]
     Indication: GLAUCOMA
     Route: 047
  11. ASA [Concomitant]
     Route: 048

REACTIONS (1)
  - Haemorrhagic anaemia [Recovered/Resolved]
